FAERS Safety Report 20551998 (Version 1)
Quarter: 2022Q1

REPORT INFORMATION
  Report Type: Spontaneous
  Country: RU (occurrence: None)
  Receive Date: 20220304
  Receipt Date: 20220304
  Transmission Date: 20220423
  Serious: Yes (Other)
  Sender: FDA-Public Use
  Company Number: 2022A095259

PATIENT
  Sex: Male

DRUGS (5)
  1. SYMBICORT [Suspect]
     Active Substance: BUDESONIDE\FORMOTEROL FUMARATE DIHYDRATE
     Indication: Asthma
     Dosage: 160/4.5 MCG UNKNOWN UNKNOWN
     Route: 055
  2. INTRAVENOUS IMMUNOGLOBULIN(IVIG) [Concomitant]
  3. TOCILIZUMAB [Concomitant]
     Active Substance: TOCILIZUMAB
  4. AZITHROMYCIN [Concomitant]
     Active Substance: AZITHROMYCIN
  5. CHLOROQUINE/HYDROXYCHLOROQUINE [Concomitant]

REACTIONS (2)
  - COVID-19 [Unknown]
  - Therapeutic response unexpected [Unknown]
